FAERS Safety Report 6008732-9 (Version None)
Quarter: 2008Q4

REPORT INFORMATION
  Report Type: 
  Country: None (occurrence: None)
  Receive Date: 20081217
  Receipt Date: 20081021
  Transmission Date: 20090506
  Serious: No
  Sender: FDA-Public Use
  Company Number: US-AMGEN-KDL306793

PATIENT
  Sex: Female

DRUGS (5)
  1. ENBREL [Suspect]
     Indication: RHEUMATOID ARTHRITIS
     Route: 058
     Dates: start: 20080301, end: 20080801
  2. PLAQUENIL [Concomitant]
     Route: 048
     Dates: start: 20070816
  3. CELEBREX [Concomitant]
     Dates: start: 20070806
  4. LEXAPRO [Concomitant]
     Dates: start: 20070806
  5. TRAZODONE HCL [Concomitant]
     Dates: start: 20070806

REACTIONS (4)
  - INJECTION SITE ERYTHEMA [None]
  - INJECTION SITE PAIN [None]
  - INJECTION SITE PRURITUS [None]
  - INJECTION SITE SWELLING [None]
